FAERS Safety Report 8581770-8 (Version None)
Quarter: 2012Q3

REPORT INFORMATION
  Report Type: 
  Country: None (occurrence: None)
  Receive Date: 20120809
  Receipt Date: 20120807
  Transmission Date: 20120928
  Serious: Yes (Hospitalization)
  Sender: FDA-Public Use
  Company Number: PHEH2012US010190

PATIENT
  Sex: Female
  Weight: 68.027 kg

DRUGS (7)
  1. GILENYA [Suspect]
     Indication: RELAPSING-REMITTING MULTIPLE SCLEROSIS
     Dosage: 0.5 MG, QD
     Route: 048
     Dates: start: 20120511, end: 20120511
  2. KEPPRA [Concomitant]
     Dosage: 750 MG, UNK
  3. DEPAKOTE [Concomitant]
     Dosage: 250 MG, UNK
  4. VALACICLOVIR [Concomitant]
  5. PHENYTOIN [Concomitant]
     Dosage: 40 MG, UNK
  6. LYRICA [Concomitant]
  7. AMPICILLIN [Concomitant]

REACTIONS (5)
  - BUNDLE BRANCH BLOCK RIGHT [None]
  - DIZZINESS [None]
  - FATIGUE [None]
  - BRADYCARDIA [None]
  - DYSPNOEA [None]
